FAERS Safety Report 10985132 (Version 1)
Quarter: 2015Q2

REPORT INFORMATION
  Report Type: Report from Study
  Country: JP (occurrence: JP)
  Receive Date: 20150404
  Receipt Date: 20150404
  Transmission Date: 20150821
  Serious: Yes (Other)
  Sender: FDA-Public Use
  Company Number: JP-ACCORD-029662

PATIENT
  Age: 59 Year
  Sex: Female

DRUGS (2)
  1. FLUOROURACIL. [Suspect]
     Active Substance: FLUOROURACIL
     Indication: ANAL SQUAMOUS CELL CARCINOMA
     Dosage: 1 750MG/M2, ADMINISTERED THROUGH A 24-H CONTINUOUS INFUSION FOR 5 DAYS,  3 TIMES EVERY 4 WEEKS
  2. MITOMYCIN. [Suspect]
     Active Substance: MITOMYCIN
     Indication: ANAL SQUAMOUS CELL CARCINOMA
     Dosage: 10 MG/M2, ADMINISTERED AS A SINGLE BOLUS INFUSION, 3 TIMES EVERY 4 WEEKS

REACTIONS (3)
  - Cystitis [Unknown]
  - Thrombocytopenia [Unknown]
  - Leukopenia [Unknown]
